FAERS Safety Report 17945412 (Version 2)
Quarter: 2020Q3

REPORT INFORMATION
  Report Type: Spontaneous
  Country: FR (occurrence: FR)
  Receive Date: 20200626
  Receipt Date: 20200703
  Transmission Date: 20201103
  Serious: Yes (Other)
  Sender: FDA-Public Use
  Company Number: FR-TEVA-2020-FR-1791090

PATIENT
  Age: 74 Year
  Sex: Male
  Weight: 66 kg

DRUGS (6)
  1. ESIDREX [Concomitant]
     Active Substance: HYDROCHLOROTHIAZIDE
  2. LEVOTHYROX [Concomitant]
     Active Substance: LEVOTHYROXINE
  3. CEFEPIME [Suspect]
     Active Substance: CEFEPIME HYDROCHLORIDE
     Indication: OSTEOMYELITIS
     Dosage: 6 GM
     Route: 042
     Dates: start: 20200424, end: 20200514
  4. VANCOMYCINE [Suspect]
     Active Substance: VANCOMYCIN
     Indication: OSTEOMYELITIS
     Dosage: 2500 MG
     Route: 042
     Dates: start: 20200424, end: 20200514
  5. PRAVASTATINE SODIQUE [Concomitant]
     Active Substance: PRAVASTATIN SODIUM
  6. LOVENOX [Concomitant]
     Active Substance: ENOXAPARIN SODIUM

REACTIONS (1)
  - Cholestasis [Recovering/Resolving]

NARRATIVE: CASE EVENT DATE: 20200511
